FAERS Safety Report 12172986 (Version 1)
Quarter: 2016Q1

REPORT INFORMATION
  Report Type: Spontaneous
  Country: FR (occurrence: FR)
  Receive Date: 20160311
  Receipt Date: 20160311
  Transmission Date: 20160526
  Serious: Yes (Other)
  Sender: FDA-Public Use
  Company Number: FR-PFIZER INC-2016141942

PATIENT
  Sex: Female

DRUGS (2)
  1. SOLU-MEDROL [Suspect]
     Active Substance: METHYLPREDNISOLONE SODIUM SUCCINATE
     Indication: MUCOSAL INFLAMMATION
     Dosage: UNK
     Dates: start: 2006
  2. FUNGIZONE [Suspect]
     Active Substance: AMPHOTERICIN B
     Indication: MUCOSAL INFLAMMATION
     Dosage: UNK
     Dates: start: 2006

REACTIONS (8)
  - Vomiting [Unknown]
  - Tinnitus [Unknown]
  - Abdominal pain [Unknown]
  - Visual impairment [Unknown]
  - Balance disorder [Unknown]
  - Vertigo [Unknown]
  - Deafness unilateral [Unknown]
  - Fatigue [Unknown]
